FAERS Safety Report 10455881 (Version 1)
Quarter: 2014Q3

REPORT INFORMATION
  Report Type: Spontaneous
  Country: US (occurrence: None)
  Receive Date: 20140915
  Receipt Date: 20140915
  Transmission Date: 20150326
  Serious: No
  Sender: FDA-Public Use
  Company Number: None

PATIENT

DRUGS (4)
  1. NOVOLIN N [Suspect]
     Active Substance: INSULIN HUMAN
  2. INSULIN ASPART [Suspect]
     Active Substance: INSULIN ASPART
  3. NOVOLIN 70/30 [Suspect]
     Active Substance: INSULIN HUMAN
  4. NOVOLIN R [Suspect]
     Active Substance: INSULIN HUMAN

REACTIONS (3)
  - Circumstance or information capable of leading to medication error [None]
  - Product packaging confusion [None]
  - Product quality issue [None]
